FAERS Safety Report 6388314-X (Version None)
Quarter: 2009Q3

REPORT INFORMATION
  Report Type: 
  Country: None (occurrence: None)
  Receive Date: 20090930
  Receipt Date: 20090915
  Transmission Date: 20100115
  Serious: Yes (Hospitalization, Disabling)
  Sender: FDA-Public Use
  Company Number: 2009002469

PATIENT

DRUGS (2)
  1. ERLOTINIB HYDROCHLORIDE [Suspect]
     Indication: COLORECTAL CANCER METASTATIC
     Dosage: (QD), ORAL
     Route: 048
     Dates: start: 20080125, end: 20090625
  2. BEVACIZUMAB [Suspect]
     Indication: COLORECTAL CANCER METASTATIC
     Dates: start: 20080125, end: 20090615

REACTIONS (5)
  - ARTHRALGIA [None]
  - MYALGIA [None]
  - RASH [None]
  - SKIN NECROSIS [None]
  - SKIN ULCER [None]
